FAERS Safety Report 5323844-0 (Version None)
Quarter: 2007Q2

REPORT INFORMATION
  Report Type: 
  Country: None (occurrence: None)
  Receive Date: 20070514
  Receipt Date: 20070507
  Transmission Date: 20071010
  Serious: Yes (Death)
  Sender: FDA-Public Use
  Company Number: B0470439A

PATIENT

DRUGS (2)
  1. SEROXAT [Suspect]
     Route: 065
  2. LITHIUM CARBONATE [Concomitant]

REACTIONS (1)
  - DEATH [None]
